FAERS Safety Report 6516127-4 (Version None)
Quarter: 2009Q4

REPORT INFORMATION
  Report Type: 
  Country: None (occurrence: None)
  Receive Date: 20091223
  Receipt Date: 20091211
  Transmission Date: 20100525
  Serious: Yes (Other)
  Sender: FDA-Public Use
  Company Number: NZ-MYLANLABS-2009S1021220

PATIENT
  Age: 17 Year
  Sex: Female

DRUGS (2)
  1. ISOTANE [Suspect]
     Indication: ACNE
     Route: 048
     Dates: end: 20091211
  2. CONTRACEPTIVE [Concomitant]

REACTIONS (1)
  - DRUG EXPOSURE DURING PREGNANCY [None]
